FAERS Safety Report 16102115 (Version 1)
Quarter: 2019Q1

REPORT INFORMATION
  Report Type: Spontaneous
  Country: US (occurrence: US)
  Receive Date: 20190220
  Receipt Date: 20190220
  Transmission Date: 20190418
  Serious: No
  Sender: FDA-Public Use
  Company Number: None

PATIENT
  Age: 62 Year
  Sex: Male

DRUGS (1)
  1. STELARA [Suspect]
     Active Substance: USTEKINUMAB
     Dosage: ?          OTHER?90MG EVERY 12 WEEKS
     Route: 058
     Dates: start: 201801, end: 201811

REACTIONS (2)
  - Therapy change [None]
  - Unevaluable event [None]

NARRATIVE: CASE EVENT DATE: 20190220
